FAERS Safety Report 19660602 (Version 1)
Quarter: 2021Q3

REPORT INFORMATION
  Report Type: Spontaneous
  Country: US (occurrence: US)
  Receive Date: 20210805
  Receipt Date: 20210805
  Transmission Date: 20211014
  Serious: No
  Sender: FDA-Public Use
  Company Number: US-GLAXOSMITHKLINE-US2021164753

PATIENT
  Sex: Female

DRUGS (1)
  1. ARNUITY ELLIPTA [Suspect]
     Active Substance: FLUTICASONE FUROATE
     Indication: PREOPERATIVE CARE
     Dosage: 1 PUFF(S), QD,100MCG
     Route: 055
     Dates: start: 202107

REACTIONS (3)
  - Product prescribing issue [Unknown]
  - Oral candidiasis [Recovered/Resolved]
  - Product use in unapproved indication [Unknown]
